FAERS Safety Report 19918720 (Version 1)
Quarter: 2021Q4

REPORT INFORMATION
  Report Type: Spontaneous
  Country: US (occurrence: US)
  Receive Date: 20211005
  Receipt Date: 20211005
  Transmission Date: 20220304
  Serious: Yes (Hospitalization)
  Sender: FDA-Public Use
  Company Number: US-MYLANLABS-2021M1068643

PATIENT
  Age: 21 Year
  Sex: Female

DRUGS (11)
  1. DEXMEDETOMIDINE [Suspect]
     Active Substance: DEXMEDETOMIDINE
     Indication: Sedative therapy
     Dosage: 0.6 MILLIGRAM/KILOGRAM, QH
     Route: 065
  2. DEXMEDETOMIDINE [Suspect]
     Active Substance: DEXMEDETOMIDINE
     Indication: Analgesic therapy
  3. MIDAZOLAM [Suspect]
     Active Substance: MIDAZOLAM
     Indication: Sedative therapy
     Dosage: 2 MILLIGRAM, QH
     Route: 065
  4. MIDAZOLAM [Suspect]
     Active Substance: MIDAZOLAM
     Indication: Analgesic therapy
  5. VECURONIUM [Suspect]
     Active Substance: VECURONIUM BROMIDE
     Indication: Neuromuscular blockade
     Dosage: INITIAL DOSAGE UNKNOWN, THEREAFTER INCREASED
     Route: 065
  6. VECURONIUM [Suspect]
     Active Substance: VECURONIUM BROMIDE
     Indication: Acute respiratory failure
     Dosage: 0.25 MILLIGRAM/KILOGRAM, QH
     Route: 065
  7. HYDROMORPHONE [Suspect]
     Active Substance: HYDROMORPHONE
     Indication: Sedative therapy
     Dosage: 1.4 MILLIGRAM, QH
     Route: 065
  8. HYDROMORPHONE [Suspect]
     Active Substance: HYDROMORPHONE
     Indication: Analgesic therapy
  9. NITRIC OXIDE [Suspect]
     Active Substance: NITRIC OXIDE
     Indication: Acute respiratory failure
     Dosage: UNK
  10. NITRIC OXIDE [Suspect]
     Active Substance: NITRIC OXIDE
     Indication: Respiratory failure
  11. SUGAMMADEX [Concomitant]
     Active Substance: SUGAMMADEX
     Indication: Neuromuscular blockade reversal
     Dosage: 16 MILLIGRAM/KILOGRAM
     Route: 065

REACTIONS (1)
  - Drug ineffective [Unknown]
